FAERS Safety Report 23297509 (Version 1)
Quarter: 2023Q4

REPORT INFORMATION
  Report Type: Spontaneous
  Country: IN (occurrence: IN)
  Receive Date: 20231214
  Receipt Date: 20231214
  Transmission Date: 20240110
  Serious: Yes (Other)
  Sender: FDA-Public Use
  Company Number: IN-AMGEN-INDSP2023217320

PATIENT
  Age: 48 Year
  Sex: Male

DRUGS (12)
  1. FILGRASTIM [Suspect]
     Active Substance: FILGRASTIM
     Indication: Leukopenia
     Dosage: UNK
     Route: 065
  2. FILGRASTIM [Suspect]
     Active Substance: FILGRASTIM
     Indication: Off label use
  3. RITUXIMAB [Concomitant]
     Active Substance: RITUXIMAB
     Dosage: 20 MILLIGRAM 20 DAYS
  4. BASILIXIMAB [Concomitant]
     Active Substance: BASILIXIMAB
  5. TACROLIMUS [Concomitant]
     Active Substance: TACROLIMUS
  6. MYCOPHENOLATE MOFETIL [Concomitant]
     Active Substance: MYCOPHENOLATE MOFETIL
  7. METHYLPREDNISOLONE [Concomitant]
     Active Substance: METHYLPREDNISOLONE
     Dosage: 250 MILLIGRAM FOR 3 DAYS
  8. PENTETIC ACID [Concomitant]
     Active Substance: PENTETIC ACID
  9. VALGANCICLOVIR [Concomitant]
     Active Substance: VALGANCICLOVIR
  10. TRIMETHOPRIM [Concomitant]
     Active Substance: TRIMETHOPRIM
  11. SULFAMETHOXAZOLE [Concomitant]
     Active Substance: SULFAMETHOXAZOLE
  12. GANCICLOVIR [Concomitant]
     Active Substance: GANCICLOVIR

REACTIONS (13)
  - Cellulitis orbital [Recovering/Resolving]
  - Klebsiella infection [Recovering/Resolving]
  - Vitreous haemorrhage [Recovering/Resolving]
  - Retinal detachment [Recovering/Resolving]
  - Aspergillus infection [Recovering/Resolving]
  - Pancytopenia [Recovering/Resolving]
  - Blindness [Recovering/Resolving]
  - Optic perineuritis [Unknown]
  - Hyponatraemia [Recovering/Resolving]
  - Lymphopenia [Recovering/Resolving]
  - Off label use [Recovering/Resolving]
  - Drug ineffective for unapproved indication [Unknown]
  - Pain [Recovering/Resolving]
